FAERS Safety Report 9547062 (Version 1)
Quarter: 2013Q3

REPORT INFORMATION
  Report Type: Spontaneous
  Country: US (occurrence: None)
  Receive Date: 20130920
  Receipt Date: 20130920
  Transmission Date: 20140515
  Serious: Yes (Other)
  Sender: FDA-Public Use
  Company Number: 2013P1019324

PATIENT
  Sex: 0

DRUGS (1)
  1. LANOXIN [Suspect]

REACTIONS (1)
  - Hypertensive crisis [None]
